FAERS Safety Report 26173448 (Version 1)
Quarter: 2025Q4

REPORT INFORMATION
  Report Type: Spontaneous
  Country: US (occurrence: US)
  Receive Date: 20251218
  Receipt Date: 20251218
  Transmission Date: 20260118
  Serious: No
  Sender: AXSOME THERAPEUTICS
  Company Number: US-AXS-AXS202512-002090

PATIENT
  Sex: Female

DRUGS (1)
  1. SYMBRAVO [Suspect]
     Active Substance: MELOXICAM\RIZATRIPTAN BENZOATE
     Indication: Product used for unknown indication

REACTIONS (1)
  - Feeling abnormal [Unknown]
